FAERS Safety Report 8240935-5 (Version None)
Quarter: 2012Q1

REPORT INFORMATION
  Report Type: 
  Country: None (occurrence: None)
  Receive Date: 20120328
  Receipt Date: 20120323
  Transmission Date: 20120608
  Serious: Yes (Hospitalization, Other)
  Sender: FDA-Public Use
  Company Number: US-ASTRAZENECA-2012SE07217

PATIENT
  Age: 54 Year
  Sex: Female

DRUGS (2)
  1. SYMBICORT [Suspect]
     Route: 055
  2. PULMICORT [Concomitant]

REACTIONS (2)
  - INTENTIONAL DRUG MISUSE [None]
  - ASTHMA [None]
